FAERS Safety Report 22204481 (Version 1)
Quarter: 2023Q2

REPORT INFORMATION
  Report Type: Spontaneous
  Country: JP (occurrence: None)
  Receive Date: 20230413
  Receipt Date: 20230413
  Transmission Date: 20230721
  Serious: Yes (Hospitalization)
  Sender: FDA-Public Use
  Company Number: JP-ALVOGEN-2022-ALVOGEN-120474

PATIENT
  Age: 77 Year
  Sex: Female
  Weight: 49 kg

DRUGS (11)
  1. ATENOLOL [Suspect]
     Active Substance: ATENOLOL
  2. DAPAGLIFLOZIN [Suspect]
     Active Substance: DAPAGLIFLOZIN
     Indication: Cardiac failure chronic
     Route: 048
     Dates: start: 20200116
  3. ENTRESTO [Suspect]
     Active Substance: SACUBITRIL\VALSARTAN
     Indication: Cardiac failure chronic
     Route: 048
     Dates: start: 20200831, end: 20210708
  4. CARVEDILOL [Concomitant]
     Active Substance: CARVEDILOL
     Indication: Cardiac failure chronic
     Route: 048
     Dates: start: 20200116, end: 20210708
  5. CYMBALTA [Concomitant]
     Active Substance: DULOXETINE HYDROCHLORIDE
     Route: 048
     Dates: start: 20200304
  6. METILDIGOXIN [Concomitant]
     Active Substance: METILDIGOXIN
     Indication: Cardiac failure chronic
     Route: 048
     Dates: start: 20200120
  7. VONOPRAZAN FUMARATE [Concomitant]
     Active Substance: VONOPRAZAN FUMARATE
     Route: 048
     Dates: start: 20200909
  8. FUROSEMIDE [Concomitant]
     Active Substance: FUROSEMIDE
     Indication: Cardiac failure chronic
     Route: 048
     Dates: start: 20200129
  9. SAMSCA [Concomitant]
     Active Substance: TOLVAPTAN
     Indication: Cardiac failure chronic
     Route: 048
     Dates: start: 20200130
  10. MEDITRANS [Concomitant]
     Dosage: DOSE UNKNOWN
     Route: 062
  11. EDOXABAN TOSYLATE [Concomitant]
     Active Substance: EDOXABAN TOSYLATE
     Route: 048
     Dates: start: 20200116

REACTIONS (1)
  - Loss of consciousness [Recovered/Resolved]

NARRATIVE: CASE EVENT DATE: 20210708
